FAERS Safety Report 10995425 (Version 1)
Quarter: 2015Q2

REPORT INFORMATION
  Report Type: Spontaneous
  Country: GB (occurrence: GB)
  Receive Date: 20150407
  Receipt Date: 20150407
  Transmission Date: 20150821
  Serious: Yes (Other)
  Sender: FDA-Public Use
  Company Number: GB-PFIZER INC-2015115304

PATIENT
  Age: 67 Year
  Sex: Male
  Weight: 106 kg

DRUGS (34)
  1. BISOPROLOL [Concomitant]
     Active Substance: BISOPROLOL
     Dosage: 1 DF, 1X/DAY
     Dates: start: 20140904
  2. FOSTAIR [Concomitant]
     Active Substance: BECLOMETHASONE\FORMOTEROL
     Dosage: 1 DF, 2X/DAY
     Dates: start: 20140904
  3. AMITRIPTYLINE HYDROCHLORIDE. [Concomitant]
     Active Substance: AMITRIPTYLINE HYDROCHLORIDE
     Dosage: 1 DF, 1X/DAY
     Dates: start: 20140904
  4. GLICLAZIDE [Concomitant]
     Active Substance: GLICLAZIDE
     Dosage: 1 DF, 2X/DAY WITH MEALS
     Dates: start: 20140904
  5. NASEPTIN [Concomitant]
     Active Substance: CHLORHEXIDINE HYDROCHLORIDE\NEOMYCIN SULFATE
     Dosage: UNK APPLY AS DIRECTED
     Dates: start: 20150114, end: 20150211
  6. NICORANDIL [Concomitant]
     Active Substance: NICORANDIL
     Dosage: 1 DF, 2X/DAY SPECIAL CONTAINER
     Dates: start: 20140904
  7. PERINDOPRIL ERBUMINE. [Concomitant]
     Active Substance: PERINDOPRIL ERBUMINE
     Dosage: 1 DF, 1X/DAY AT 6 PM
     Dates: start: 20140904
  8. AMLODIPINE [Concomitant]
     Active Substance: AMLODIPINE BESYLATE
     Dosage: 1 DF, 1X/DAY
     Dates: start: 20140904
  9. ASPIRIN. [Concomitant]
     Active Substance: ASPIRIN
     Dosage: 1 DF, 1X/DAY
     Dates: start: 20140904
  10. CORSODYL [Concomitant]
     Active Substance: CHLORHEXIDINE GLUCONATE
     Dosage: 1 DF, 2X/DAY
     Dates: start: 20150319
  11. BISACODYL. [Concomitant]
     Active Substance: BISACODYL
     Indication: CONSTIPATION
     Dosage: TAKE 1 OR 2 AT NIGHT
     Dates: start: 20140904
  12. DIPROBASE CREAM [Concomitant]
     Dosage: 1 DF, 3X/DAY
     Dates: start: 20140904, end: 20150203
  13. NYSTAN [Concomitant]
     Active Substance: NYSTATIN
     Dosage: 1 ML, 4X/DAY
     Dates: start: 20150312, end: 20150319
  14. OILATUM 1 [Concomitant]
     Dosage: UNK
     Dates: start: 20140904
  15. CETIRIZINE [Concomitant]
     Active Substance: CETIRIZINE HYDROCHLORIDE
     Dosage: 1 DF, 1X/DAY
     Dates: start: 20140904
  16. DERMOL [Concomitant]
     Active Substance: BENZALKONIUM CHLORIDE\CHLORHEXIDINE HYDROCHLORIDE\ISOPROPYL MYRISTATE\PARAFFIN
     Dosage: AS DIRECTED
     Dates: start: 20140904
  17. HYLO-FORTE [Concomitant]
     Dosage: AS DIRECTED. DISCARD 6 MONTHS AFTER OPEN
     Dates: start: 20140904
  18. LACRI-LUBE [Concomitant]
     Dosage: UNK USE AS DIRECTED AT NIGHT
     Dates: start: 20140904
  19. RECTOGESIC [Concomitant]
     Active Substance: NITROGLYCERIN
     Dosage: APPLY 2.5 CM OF OINT TO ANAL CANAL
     Route: 061
     Dates: start: 20150129, end: 20150226
  20. TIOTROPIUM [Concomitant]
     Active Substance: TIOTROPIUM
     Dosage: 1 DF, 1X/DAY
     Route: 055
     Dates: start: 20140904
  21. METFORMIN [Concomitant]
     Active Substance: METFORMIN HYDROCHLORIDE
     Dosage: 2 DF, 2X/DAY WITH MEALS
     Dates: start: 20140904
  22. IBUPROFEN. [Suspect]
     Active Substance: IBUPROFEN
     Dosage: UNK
     Dates: start: 20150324
  23. CLOPIDOGREL [Concomitant]
     Active Substance: CLOPIDOGREL BISULFATE
     Dosage: 1 DF, 1X/DAY
     Dates: start: 20140904
  24. FUROSEMIDE. [Concomitant]
     Active Substance: FUROSEMIDE
     Dosage: 1 DF, 2X/DAY IN AFTERNOON
     Dates: start: 20140904
  25. LANSOPRAZOLE. [Concomitant]
     Active Substance: LANSOPRAZOLE
     Dosage: 1 DF, ONCE OR TWICE
     Dates: start: 20140904
  26. MOXONIDINE [Concomitant]
     Active Substance: MOXONIDINE
     Dosage: 1 DF, 1X/DAY IN THE MORNING
     Dates: start: 20140904
  27. PARACETAMOL [Concomitant]
     Active Substance: ACETAMINOPHEN
     Dosage: TAKE 1 OR 2, 4X/DAY
     Dates: start: 20150312, end: 20150322
  28. QUININE [Concomitant]
     Active Substance: QUININE
     Dosage: UNK USE AS DIRECTED
     Dates: start: 20140904
  29. ALLOPURINOL. [Concomitant]
     Active Substance: ALLOPURINOL
     Dosage: 1 DF, 1X/DAY
     Dates: start: 20140904
  30. ATORVASTATIN [Concomitant]
     Active Substance: ATORVASTATIN
     Dosage: 1 DF, 1X/DAY
     Dates: start: 20140904
  31. FERROUS FUMARATE [Concomitant]
     Active Substance: FERROUS FUMARATE
     Dosage: 1 DF, 3X/DAY
     Dates: start: 20140904
  32. GLYCERYL TRINITRATE [Concomitant]
     Active Substance: NITROGLYCERIN
     Dosage: SPRAY 1 TO 2 DOSES UNDER THE TONGUE
     Dates: start: 20140904
  33. REFRESH OPTIVE [Concomitant]
     Active Substance: CARBOXYMETHYLCELLULOSE SODIUM\GLYCERIN
     Dosage: UNK USE AS DIRECTED.  DISCARD SIX MONTHS AFTER OPENING
     Dates: start: 20140904
  34. VENTOLIN [Concomitant]
     Active Substance: ALBUTEROL SULFATE
     Dosage: 2 DF, UNK
     Route: 055
     Dates: start: 20140904

REACTIONS (2)
  - Malaise [Unknown]
  - Chronic kidney disease [Recovered/Resolved]

NARRATIVE: CASE EVENT DATE: 20150324
